FAERS Safety Report 8099452-8 (Version None)
Quarter: 2012Q1

REPORT INFORMATION
  Report Type: 
  Country: None (occurrence: None)
  Receive Date: 20120129
  Receipt Date: 20111025
  Transmission Date: 20120608
  Serious: No
  Sender: FDA-Public Use
  Company Number: US-ABBOTT-11P-163-0861671-00

PATIENT
  Age: 51 Year
  Sex: Female

DRUGS (6)
  1. HUMIRA [Suspect]
     Indication: COLITIS ULCERATIVE
     Dates: start: 20110723
  2. IRON [Concomitant]
     Indication: ANAEMIA
     Dosage: SLOW RELEASE DAILY
  3. CALCIUM [Concomitant]
     Indication: PRODUCT USED FOR UNKNOWN INDICATION
     Dosage: DAILY
  4. FOLIC ACID [Concomitant]
     Indication: PRODUCT USED FOR UNKNOWN INDICATION
     Dosage: DAILY
  5. ASACOL [Concomitant]
     Indication: COLITIS
     Dosage: DAILY
  6. IMURAN [Concomitant]
     Indication: COLITIS
     Dosage: DAILY

REACTIONS (5)
  - MUSCULOSKELETAL STIFFNESS [None]
  - JOINT STIFFNESS [None]
  - MYALGIA [None]
  - INJECTION SITE PAIN [None]
  - MUSCLE SPASMS [None]
